FAERS Safety Report 12773068 (Version 1)
Quarter: 2016Q3

REPORT INFORMATION
  Report Type: Spontaneous
  Country: None (occurrence: US)
  Receive Date: 20160922
  Receipt Date: 20160922
  Transmission Date: 20161109
  Serious: No
  Sender: FDA-Public Use
  Company Number: US-BION-20160220

PATIENT

DRUGS (1)
  1. ZYRTEC [Suspect]
     Active Substance: CETIRIZINE HYDROCHLORIDE
     Dosage: 1 DOSAGE FORM TAKEN EVERY 12 HOURS
     Route: 048

REACTIONS (3)
  - Somnolence [Unknown]
  - Inappropriate schedule of drug administration [Unknown]
  - Fatigue [Unknown]
